FAERS Safety Report 18731202 (Version 1)
Quarter: 2021Q1

REPORT INFORMATION
  Report Type: Spontaneous
  Country: US (occurrence: US)
  Receive Date: 20210112
  Receipt Date: 20210112
  Transmission Date: 20210419
  Serious: No
  Sender: FDA-Public Use
  Company Number: US-TAKEDA-2021TUS001796

PATIENT
  Sex: Female

DRUGS (4)
  1. FOCALIN [DEXAMETHASONE;OFLOXACIN HYDROCHLORIDE] [Suspect]
     Active Substance: DEXAMETHASONE\OFLOXACIN
     Dosage: UNK
     Route: 065
  2. TRINTELLIX [Suspect]
     Active Substance: VORTIOXETINE HYDROBROMIDE
     Indication: DEPRESSION
  3. TRINTELLIX [Suspect]
     Active Substance: VORTIOXETINE HYDROBROMIDE
     Indication: CRANIOCEREBRAL INJURY
     Dosage: UNK
     Route: 065
  4. FOCALIN [DEXAMETHASONE;OFLOXACIN HYDROCHLORIDE] [Suspect]
     Active Substance: DEXAMETHASONE\OFLOXACIN
     Indication: ATTENTION DEFICIT HYPERACTIVITY DISORDER
     Dosage: UNK
     Route: 065

REACTIONS (1)
  - Tachycardia [Recovered/Resolved]
